FAERS Safety Report 5998892-8 (Version None)
Quarter: 2008Q4

REPORT INFORMATION
  Report Type: 
  Country: None (occurrence: None)
  Receive Date: 20081213
  Receipt Date: 20080725
  Transmission Date: 20090506
  Serious: No
  Sender: FDA-Public Use
  Company Number: US-AMGEN-KDL296389

PATIENT
  Sex: Male

DRUGS (3)
  1. ENBREL [Suspect]
     Indication: RHEUMATOID ARTHRITIS
     Route: 058
     Dates: start: 20080624
  2. VICODIN [Suspect]
  3. METHOTREXATE [Concomitant]

REACTIONS (3)
  - CONFUSIONAL STATE [None]
  - DISTURBANCE IN ATTENTION [None]
  - MEMORY IMPAIRMENT [None]
